FAERS Safety Report 15873302 (Version 4)
Quarter: 2019Q1

REPORT INFORMATION
  Report Type: Spontaneous
  Country: US (occurrence: US)
  Receive Date: 20190126
  Receipt Date: 20190312
  Transmission Date: 20190417
  Serious: No
  Sender: FDA-Public Use
  Company Number: PHEH2019US003638

PATIENT
  Sex: Male

DRUGS (1)
  1. TRAVATAN Z [Suspect]
     Active Substance: TRAVOPROST
     Indication: PRODUCT USED FOR UNKNOWN INDICATION
     Dosage: 1 GTT, ONCE EVERY TWO DAYS
     Route: 047

REACTIONS (4)
  - Eye pain [Unknown]
  - Product quality issue [Unknown]
  - Eye irritation [Unknown]
  - Product label issue [Unknown]
